FAERS Safety Report 9789623 (Version 1)
Quarter: 2013Q4

REPORT INFORMATION
  Report Type: Report from Study
  Country: US (occurrence: US)
  Receive Date: 20131231
  Receipt Date: 20131231
  Transmission Date: 20140711
  Serious: Yes (Other)
  Sender: FDA-Public Use
  Company Number: US-ROCHE-1314636

PATIENT
  Sex: Female

DRUGS (3)
  1. BONIVA [Suspect]
     Indication: SENILE OSTEOPOROSIS
     Route: 042
     Dates: start: 200709, end: 200909
  2. ERGOCALCIFEROL [Concomitant]
     Dosage: 50000 UNITS
     Route: 065
  3. SYNTHROID [Concomitant]
     Indication: HYPOTHYROIDISM
     Route: 065

REACTIONS (8)
  - Femur fracture [Unknown]
  - Gastrooesophageal reflux disease [Unknown]
  - Irritable bowel syndrome [Unknown]
  - Neck pain [Unknown]
  - Dysphagia [Unknown]
  - Dry eye [Unknown]
  - Chronic sinusitis [Unknown]
  - Constipation [Unknown]
